FAERS Safety Report 6431984-8 (Version None)
Quarter: 2009Q4

REPORT INFORMATION
  Report Type: 
  Country: None (occurrence: None)
  Receive Date: 20091109
  Receipt Date: 20091103
  Transmission Date: 20100525
  Serious: Yes (Death, Hospitalization)
  Sender: FDA-Public Use
  Company Number: US-JNJFOC-20091101284

PATIENT
  Sex: Male
  Weight: 81.65 kg

DRUGS (1)
  1. FENTANYL TRANSDERMAL SYSTEM [Suspect]
     Indication: CANCER PAIN
     Route: 062
     Dates: start: 20090401, end: 20090501

REACTIONS (2)
  - ADVERSE EVENT [None]
  - GASTRIC CANCER [None]
